FAERS Safety Report 7271596-X (Version None)
Quarter: 2011Q1

REPORT INFORMATION
  Report Type: 
  Country: None (occurrence: None)
  Receive Date: 20110126
  Receipt Date: 20110126
  Transmission Date: 20110831
  Serious: Yes (Hospitalization)
  Sender: FDA-Public Use
  Company Number: None

PATIENT
  Age: 53 Year
  Sex: Female
  Weight: 49.8957 kg

DRUGS (1)
  1. VERAPAMIL PM 300 MG [Suspect]
     Indication: VENTRICULAR TACHYCARDIA
     Dosage: 1 PILL EACH DAY PO
     Route: 048
     Dates: start: 20100101, end: 20100301

REACTIONS (2)
  - PRODUCT SUBSTITUTION ISSUE [None]
  - VENTRICULAR TACHYCARDIA [None]
